FAERS Safety Report 21241638 (Version 2)
Quarter: 2022Q3

REPORT INFORMATION
  Report Type: Other
  Country: BE (occurrence: BE)
  Receive Date: 20220823
  Receipt Date: 20220906
  Transmission Date: 20221027
  Serious: Yes (Other)
  Sender: FDA-Public Use
  Company Number: BE-SEATTLE GENETICS-2022SGN06237

PATIENT
  Age: 66 Year
  Sex: Female
  Weight: 68 kg

DRUGS (16)
  1. CAPECITABINE [Suspect]
     Active Substance: CAPECITABINE
     Indication: HER2 positive breast cancer
     Dosage: 800 MG/M2, BID
     Route: 065
     Dates: start: 20220203
  2. CAPECITABINE [Suspect]
     Active Substance: CAPECITABINE
     Dosage: 582 MG/M2, BID
     Route: 065
     Dates: end: 20220505
  3. TRASTUZUMAB [Suspect]
     Active Substance: TRASTUZUMAB
     Indication: HER2 positive breast cancer
     Route: 065
  4. TRASTUZUMAB [Suspect]
     Active Substance: TRASTUZUMAB
     Dosage: 8 MG/KG ONCE
     Route: 065
     Dates: start: 20220203
  5. TUCATINIB [Suspect]
     Active Substance: TUCATINIB
     Indication: HER2 positive breast cancer
     Dosage: 200 MG, BID
     Route: 065
     Dates: start: 20220224
  6. TUCATINIB [Suspect]
     Active Substance: TUCATINIB
     Dosage: 300 MG BID
     Route: 065
     Dates: start: 20220203
  7. TUCATINIB [Suspect]
     Active Substance: TUCATINIB
     Dosage: 150 MG, BID
     Route: 065
     Dates: start: 20220414, end: 20220505
  8. MEDROL [Concomitant]
     Active Substance: METHYLPREDNISOLONE
     Dosage: 32 MG 1/2 TABLET, QD
  9. CINNARIZINE [Concomitant]
     Active Substance: CINNARIZINE
     Dosage: 25 MG, TID
  10. BETAHISTINE [Concomitant]
     Active Substance: BETAHISTINE
     Dosage: 24 MG, TID
  11. VITAPANTOL [Concomitant]
     Dosage: 1 DF, TID NASAL OINTMENT
  12. ZOLPIDEM [Concomitant]
     Active Substance: ZOLPIDEM TARTRATE
     Dosage: 10 MG, QD
  13. XGEVA [Concomitant]
     Active Substance: DENOSUMAB
     Dosage: 70 MG/ML 1.7 ML, Q4WEEKS
  14. METHYLPREDNISOLONE SODIUM SUCCINATE [Concomitant]
     Active Substance: METHYLPREDNISOLONE SODIUM SUCCINATE
     Dosage: 4 MG, QD
  15. CYANOCOBALAMIN\PYRIDOXINE HYDROCHLORIDE\RIBOFLAVIN\SODIUM PANTOTHENATE [Concomitant]
     Active Substance: CYANOCOBALAMIN\PYRIDOXINE HYDROCHLORIDE\RIBOFLAVIN\SODIUM PANTOTHENATE\THIAMINE HYDROCHLORIDE\VITAMI
     Dosage: 1 DF, BID
  16. LEVETIRACETAM [Concomitant]
     Active Substance: LEVETIRACETAM
     Dosage: 1000 MG, BID

REACTIONS (6)
  - Aspartate aminotransferase increased [Not Recovered/Not Resolved]
  - Palmar-plantar erythrodysaesthesia syndrome [Recovered/Resolved]
  - Alanine aminotransferase increased [Not Recovered/Not Resolved]
  - Diarrhoea [Unknown]
  - Asthenia [Unknown]
  - Hepatic enzyme increased [Unknown]

NARRATIVE: CASE EVENT DATE: 20220223
